FAERS Safety Report 6164779-3 (Version None)
Quarter: 2009Q2

REPORT INFORMATION
  Report Type: 
  Country: None (occurrence: None)
  Receive Date: 20090423
  Receipt Date: 20090417
  Transmission Date: 20091009
  Serious: No
  Sender: FDA-Public Use
  Company Number: US-B.I. PHARMACEUTICALS,INC./RIDGEFIELD-2009-BP-04881BP

PATIENT
  Sex: Female

DRUGS (8)
  1. MIRAPEX [Suspect]
     Indication: RESTLESS LEGS SYNDROME
     Dosage: 1.5MG
     Route: 048
     Dates: start: 20090101
  2. HYZAAR [Concomitant]
     Indication: HYPERTENSION
     Route: 048
  3. PREVACID [Concomitant]
     Indication: GASTROOESOPHAGEAL REFLUX DISEASE
     Dosage: 30MG
     Route: 048
  4. ASPIRIN [Concomitant]
     Indication: CARDIOVASCULAR EVENT PROPHYLAXIS
     Dosage: 81MG
     Route: 048
  5. METOPROLOL SUCCINATE [Concomitant]
     Indication: HYPERTENSION
     Dosage: 50MG
     Route: 048
  6. SIMVASTATIN [Concomitant]
     Indication: BLOOD CHOLESTEROL INCREASED
     Dosage: 40MG
     Route: 048
  7. CELEBREX [Concomitant]
     Indication: ARTHRITIS
     Dosage: 20MG
     Route: 048
  8. CENTRUM SILVER [Concomitant]
     Indication: VITAMIN SUPPLEMENTATION
     Dosage: 1150MG
     Route: 048

REACTIONS (7)
  - CONSTIPATION [None]
  - DIZZINESS POSTURAL [None]
  - HALLUCINATION [None]
  - MEDICATION ERROR [None]
  - MUSCULAR WEAKNESS [None]
  - NAUSEA [None]
  - SOMNOLENCE [None]
